FAERS Safety Report 5000636-3 (Version None)
Quarter: 2006Q2

REPORT INFORMATION
  Report Type: 
  Country: None (occurrence: None)
  Receive Date: 20060512
  Receipt Date: 20060502
  Transmission Date: 20061013
  Serious: Yes (Hospitalization)
  Sender: FDA-Public Use
  Company Number: FR-AVENTIS-200611662FR

PATIENT
  Age: 72 Year
  Sex: Female

DRUGS (14)
  1. ARAVA [Suspect]
     Indication: PSORIATIC ARTHROPATHY
     Route: 048
     Dates: start: 20040220, end: 20050223
  2. ARAVA [Suspect]
     Route: 048
     Dates: start: 20050315, end: 20060410
  3. LANTUS [Concomitant]
     Indication: DIABETES MELLITUS
  4. FONZYLANE [Concomitant]
     Route: 048
  5. STILNOX [Concomitant]
     Route: 048
  6. OSTRAM [Concomitant]
     Route: 048
  7. MOPRAL [Concomitant]
     Route: 048
  8. LIPANTHYL [Concomitant]
     Route: 048
  9. FLECAINIDE ACETATE [Concomitant]
     Route: 048
  10. ASPIRIN [Concomitant]
     Route: 048
  11. CORTANCYL [Concomitant]
     Route: 048
  12. DURAGESIC-100 [Concomitant]
     Route: 048
  13. MORPHINE SULFATE [Concomitant]
     Route: 048
  14. AMARYL [Concomitant]
     Route: 048

REACTIONS (4)
  - AORTIC VALVE DISEASE [None]
  - SKIN NECROSIS [None]
  - SKIN ULCER HAEMORRHAGE [None]
  - TOE AMPUTATION [None]
